FAERS Safety Report 21515549 (Version 2)
Quarter: 2022Q4

REPORT INFORMATION
  Report Type: Spontaneous
  Country: US (occurrence: US)
  Receive Date: 20221027
  Receipt Date: 20221208
  Transmission Date: 20230113
  Serious: Yes (Hospitalization, Other)
  Sender: FDA-Public Use
  Company Number: US-TEVA-2022-US-2818626

PATIENT
  Age: 81 Year
  Sex: Female

DRUGS (3)
  1. CLONAZEPAM [Suspect]
     Active Substance: CLONAZEPAM
     Indication: Seizure
     Dosage: 0.5 MG,
     Route: 065
  2. CLONAZEPAM [Suspect]
     Active Substance: CLONAZEPAM
     Indication: Anxiety
     Dosage: 2MG, TABLET IMPRINT WHICH IS 834 AND COLOR WHITE
     Route: 065
  3. MIRTAZAPINE [Suspect]
     Active Substance: MIRTAZAPINE
     Indication: Product used for unknown indication
     Route: 065

REACTIONS (14)
  - Seizure [Unknown]
  - Loss of consciousness [Unknown]
  - Drug dependence [Unknown]
  - Thrombosis [Unknown]
  - Anxiety [Unknown]
  - Insomnia [Unknown]
  - Staring [Unknown]
  - Speech disorder [Unknown]
  - Limb discomfort [Unknown]
  - Listless [Unknown]
  - Drug ineffective [Unknown]
  - Product dose omission issue [Unknown]
  - Product use issue [Unknown]
  - Wrong technique in product usage process [Unknown]
